FAERS Safety Report 9162918 (Version 1)
Quarter: 2013Q1

REPORT INFORMATION
  Report Type: Spontaneous
  Country: US (occurrence: US)
  Receive Date: 20130314
  Receipt Date: 20130314
  Transmission Date: 20140127
  Serious: No
  Sender: FDA-Public Use
  Company Number: US-BAYER-2013-031977

PATIENT
  Age: 56 Year
  Sex: Male

DRUGS (3)
  1. LEVITRA [Suspect]
     Indication: ERECTILE DYSFUNCTION
     Dosage: 20 MG, OW
     Route: 048
  2. NEUROPATHY MEDICINE [Concomitant]
  3. TESTOSTERONE [Concomitant]

REACTIONS (1)
  - Labelled drug-drug interaction medication error [None]
